FAERS Safety Report 8965646 (Version 2)
Quarter: 2012Q4

REPORT INFORMATION
  Report Type: Spontaneous
  Country: CA (occurrence: None)
  Receive Date: 20121203
  Receipt Date: 20121205
  Transmission Date: 20130627
  Serious: Yes (Death, Other)
  Sender: FDA-Public Use
  Company Number: AECAN201200520

PATIENT
  Age: 66 Year
  Sex: Female

DRUGS (3)
  1. PLASBUMIN [Suspect]
     Indication: HYPOTENSION
     Route: 042
     Dates: start: 20120807, end: 20120810
  2. PLASBUMIN [Suspect]
     Indication: EDEMA
     Route: 042
     Dates: start: 20120807, end: 20120810
  3. ENOXAPARIN [Concomitant]

REACTIONS (1)
  - Antibody test positive [None]
